FAERS Safety Report 15616429 (Version 1)
Quarter: 2018Q4

REPORT INFORMATION
  Report Type: Spontaneous
  Country: US (occurrence: US)
  Receive Date: 20181108
  Receipt Date: 20181108
  Transmission Date: 20190205
  Serious: No
  Sender: FDA-Public Use
  Company Number: None

PATIENT
  Age: 45 Year
  Sex: Male

DRUGS (1)
  1. MAVYRET [Suspect]
     Active Substance: GLECAPREVIR\PIBRENTASVIR
     Dates: start: 20180927

REACTIONS (6)
  - Dyspnoea [None]
  - Constipation [None]
  - Fatigue [None]
  - Abdominal distension [None]
  - Intra-abdominal fluid collection [None]
  - Hyperhidrosis [None]

NARRATIVE: CASE EVENT DATE: 20181107
